FAERS Safety Report 5236689-7 (Version None)
Quarter: 2007Q1

REPORT INFORMATION
  Report Type: 
  Country: None (occurrence: None)
  Receive Date: 20070209
  Receipt Date: 20070124
  Transmission Date: 20070707
  Serious: Yes (Hospitalization)
  Sender: FDA-Public Use
  Company Number: 8021471

PATIENT

DRUGS (5)
  1. THEOPHYLLINE [Suspect]
  2. TACROLIMUS [Suspect]
  3. FLUCONAZOLE [Suspect]
  4. VORICONAZOLE [Suspect]
  5. OMEPRAZOLE [Suspect]

REACTIONS (4)
  - DRUG INTERACTION INHIBITION [None]
  - DRUG LEVEL ABOVE THERAPEUTIC [None]
  - DRUG LEVEL BELOW THERAPEUTIC [None]
  - TUBERCULOSIS [None]
